FAERS Safety Report 17592101 (Version 1)
Quarter: 2020Q1

REPORT INFORMATION
  Report Type: Spontaneous
  Country: AT (occurrence: AT)
  Receive Date: 20200327
  Receipt Date: 20200327
  Transmission Date: 20200409
  Serious: Yes (Other)
  Sender: FDA-Public Use
  Company Number: AT-ASTRAZENECA-2020SE42707

PATIENT
  Sex: Female
  Weight: 150 kg

DRUGS (2)
  1. FORTECORTIN [Suspect]
     Active Substance: DEXAMETHASONE
     Dosage: 5-0-0
     Route: 065
     Dates: start: 20200302, end: 20200304
  2. NEXIUM [Suspect]
     Active Substance: ESOMEPRAZOLE MAGNESIUM
     Route: 065

REACTIONS (2)
  - Dyspnoea exertional [Unknown]
  - Angina pectoris [Unknown]

NARRATIVE: CASE EVENT DATE: 20200303
